FAERS Safety Report 7813327-8 (Version None)
Quarter: 2011Q4

REPORT INFORMATION
  Report Type: 
  Country: None (occurrence: None)
  Receive Date: 20111013
  Receipt Date: 20110929
  Transmission Date: 20120403
  Serious: Yes (Other)
  Sender: FDA-Public Use
  Company Number: US-ROCHE-1002370

PATIENT
  Sex: Male

DRUGS (2)
  1. ACCUTANE [Suspect]
     Indication: PRODUCT USED FOR UNKNOWN INDICATION
     Route: 065
     Dates: start: 20080801, end: 20090401
  2. SOTRET [Suspect]
     Indication: ACNE
     Route: 065
     Dates: start: 20080801, end: 20090401

REACTIONS (3)
  - COLITIS ULCERATIVE [None]
  - ANXIETY [None]
  - INFLAMMATORY BOWEL DISEASE [None]
